FAERS Safety Report 23422589 (Version 1)
Quarter: 2024Q1

REPORT INFORMATION
  Report Type: Spontaneous
  Country: CA (occurrence: CA)
  Receive Date: 20240119
  Receipt Date: 20240119
  Transmission Date: 20240409
  Serious: Yes (Hospitalization, Other)
  Sender: FDA-Public Use
  Company Number: CA-FreseniusKabi-FK202400807

PATIENT
  Sex: Female

DRUGS (3)
  1. BLEOMYCIN SULFATE [Suspect]
     Active Substance: BLEOMYCIN SULFATE
     Indication: Ovarian germ cell endodermal sinus tumour stage I
     Dosage: DOSAGE FORM: INJECTION
     Route: 065
  2. ETOPOSIDE [Suspect]
     Active Substance: ETOPOSIDE
     Indication: Ovarian germ cell endodermal sinus tumour stage I
     Dosage: DOSAGE FORM: NOT SPECIFIED
     Route: 065
  3. CISPLATIN [Suspect]
     Active Substance: CISPLATIN
     Indication: Ovarian germ cell endodermal sinus tumour stage I
     Dosage: SOLUTION INTRAVENOUS?INTRAVENOUS

REACTIONS (1)
  - Febrile neutropenia [Unknown]
